FAERS Safety Report 8573809-0 (Version None)
Quarter: 2012Q3

REPORT INFORMATION
  Report Type: 
  Country: None (occurrence: None)
  Receive Date: 20120806
  Receipt Date: 20110714
  Transmission Date: 20120928
  Serious: No
  Sender: FDA-Public Use
  Company Number: US-GLAXOSMITHKLINE-A0936846A

PATIENT
  Age: 48 Year
  Sex: Female

DRUGS (3)
  1. PRIMIDONE [Concomitant]
  2. FLUTICASONE PROPIONATE [Suspect]
     Indication: ASTHMA
     Dosage: 1PUFF TWICE PER DAY
     Route: 055
     Dates: start: 20110501
  3. VENTOLIN HFA [Concomitant]

REACTIONS (1)
  - COUGH [None]
